FAERS Safety Report 4923861-6 (Version None)
Quarter: 2006Q1

REPORT INFORMATION
  Report Type: 
  Country: None (occurrence: None)
  Receive Date: 20060227
  Receipt Date: 20050324
  Transmission Date: 20060701
  Serious: Yes (Hospitalization)
  Sender: FDA-Public Use
  Company Number: US-MERCK-0503USA04656

PATIENT
  Sex: Female
  Weight: 123 kg

DRUGS (2)
  1. VIOXX [Suspect]
     Indication: ARTHRITIS
     Route: 048
     Dates: start: 20010501, end: 20040930
  2. VIOXX [Suspect]
     Indication: BACK PAIN
     Route: 048
     Dates: start: 20010501, end: 20040930

REACTIONS (11)
  - ADVERSE EVENT [None]
  - ARTERIAL DISORDER [None]
  - ARTHRALGIA [None]
  - CARDIAC DISORDER [None]
  - CHEST PAIN [None]
  - DYSPNOEA [None]
  - HAEMATOMA [None]
  - INCISION SITE HAEMORRHAGE [None]
  - INJURY [None]
  - PAIN IN EXTREMITY [None]
  - SHOULDER PAIN [None]
